FAERS Safety Report 8560373-5 (Version None)
Quarter: 2012Q3

REPORT INFORMATION
  Report Type: 
  Country: None (occurrence: None)
  Receive Date: 20120802
  Receipt Date: 20120730
  Transmission Date: 20120928
  Serious: Yes (Death, Hospitalization)
  Sender: FDA-Public Use
  Company Number: US-B.I. PHARMACEUTICALS,INC./RIDGEFIELD-2012-BP-17132BP

PATIENT
  Sex: Male

DRUGS (6)
  1. FISH OIL [Concomitant]
  2. PERCOCET [Concomitant]
  3. PRADAXA [Suspect]
     Dates: start: 20120101, end: 20120101
  4. PROTONIX [Concomitant]
  5. COUMADIN [Concomitant]
  6. LOMOTIL [Concomitant]

REACTIONS (2)
  - HAEMORRHAGE [None]
  - DEATH [None]
